FAERS Safety Report 11444363 (Version 1)
Quarter: 2015Q3

REPORT INFORMATION
  Report Type: Report from Study
  Country: US (occurrence: US)
  Receive Date: 20150902
  Receipt Date: 20150902
  Transmission Date: 20151125
  Serious: No
  Sender: FDA-Public Use
  Company Number: PHEH2015US007283

PATIENT
  Sex: Male
  Weight: 78.1 kg

DRUGS (1)
  1. GILENYA [Suspect]
     Active Substance: FINGOLIMOD HYDROCHLORIDE
     Indication: MULTIPLE SCLEROSIS
     Dosage: 0.5 MG, QD
     Route: 048
     Dates: start: 20150127

REACTIONS (6)
  - Cough [Unknown]
  - Feeling abnormal [Unknown]
  - Eye disorder [Unknown]
  - Productive cough [Unknown]
  - Multiple sclerosis relapse [Unknown]
  - Malaise [Unknown]
